FAERS Safety Report 7814830-7 (Version None)
Quarter: 2011Q4

REPORT INFORMATION
  Report Type: 
  Country: None (occurrence: None)
  Receive Date: 20111014
  Receipt Date: 20111007
  Transmission Date: 20120403
  Serious: Yes (Hospitalization, Other)
  Sender: FDA-Public Use
  Company Number: PHHY2011US89353

PATIENT
  Age: 78 Year
  Sex: Male

DRUGS (9)
  1. WARFARIN SODIUM [Suspect]
     Indication: CEREBROVASCULAR ACCIDENT
     Dosage: 5 MG, UNK
  2. WARFARIN SODIUM [Suspect]
     Dosage: 4 MG, UNK
  3. ASPIRIN [Suspect]
     Dosage: 81 MG, UNK
  4. FUROSEMIDE [Concomitant]
     Dosage: 20 MG, UNK
  5. DABIGATRAN [Suspect]
     Indication: ATRIAL FIBRILLATION
     Dosage: 150 MG, BID
  6. ALEVE [Suspect]
     Indication: ABDOMINAL PAIN UPPER
     Dosage: 220 MG, BID
  7. METOPROLOL TARTRATE [Concomitant]
     Dosage: 100 MG, BID
  8. ENOXAPARIN [Suspect]
     Dosage: 40 MG, UNK
  9. LISINOPRIL [Concomitant]
     Dosage: 20 MG, UNK

REACTIONS (8)
  - ABDOMINAL PAIN UPPER [None]
  - TACHYCARDIA [None]
  - GASTROINTESTINAL HAEMORRHAGE [None]
  - INTERNATIONAL NORMALISED RATIO INCREASED [None]
  - TACHYPNOEA [None]
  - MELAENA [None]
  - GASTRIC DISORDER [None]
  - HYPOTENSION [None]
